FAERS Safety Report 8920878 (Version 1)
Quarter: 2012Q4

REPORT INFORMATION
  Report Type: 
  Country: US (occurrence: US)
  Receive Date: 20121121
  Receipt Date: 20121121
  Transmission Date: 20130627
  Serious: No
  Sender: FDA-Public Use
  Company Number: US-009507513-1211USA004156

PATIENT
  Sex: Female

DRUGS (2)
  1. AZASITE [Suspect]
     Indication: DRY EYE
     Dosage: 1 drop each eye, qpm
     Route: 047
     Dates: start: 20121019
  2. AZASITE [Suspect]
     Indication: EYE INFECTION

REACTIONS (1)
  - Drug ineffective [Recovering/Resolving]
